FAERS Safety Report 4508150-6 (Version None)
Quarter: 2004Q4

REPORT INFORMATION
  Report Type: 
  Country: None (occurrence: None)
  Receive Date: 20041123
  Receipt Date: 20031029
  Transmission Date: 20050328
  Serious: No
  Sender: FDA-Public Use
  Company Number: US-GLAXOSMITHKLINE-A0432102A

PATIENT
  Age: 29 Year
  Sex: Female

DRUGS (3)
  1. WELLBUTRIN [Suspect]
     Indication: DEPRESSION
     Dosage: 150MCG PER DAY
     Route: 048
     Dates: start: 20031027
  2. TYLENOL COLD + SINUS [Concomitant]
  3. BIRTH CONTROL PILL [Concomitant]

REACTIONS (1)
  - VAGINAL HAEMORRHAGE [None]
